FAERS Safety Report 4460701-6 (Version None)
Quarter: 2004Q3

REPORT INFORMATION
  Report Type: 
  Country: None (occurrence: None)
  Receive Date: 20040928
  Receipt Date: 20040720
  Transmission Date: 20050211
  Serious: No
  Sender: FDA-Public Use
  Company Number: US-GLAXOSMITHKLINE-A0519042A

PATIENT
  Age: 75 Year
  Sex: Female
  Weight: 68.2 kg

DRUGS (3)
  1. ADVAIR DISKUS 100/50 [Suspect]
     Dosage: 1PUFF TWICE PER DAY
     Route: 055
     Dates: start: 20040622
  2. NICODERM [Suspect]
     Indication: ILL-DEFINED DISORDER
     Route: 061
  3. ATIVAN [Concomitant]

REACTIONS (1)
  - CONFUSIONAL STATE [None]
